FAERS Safety Report 8255248-5 (Version None)
Quarter: 2012Q1

REPORT INFORMATION
  Report Type: 
  Country: None (occurrence: None)
  Receive Date: 20120330
  Receipt Date: 20120313
  Transmission Date: 20120608
  Serious: Yes (Other)
  Sender: FDA-Public Use
  Company Number: 2012-1308

PATIENT
  Age: 79 Year
  Sex: Female
  Weight: 47 kg

DRUGS (19)
  1. TOPROL-XL [Concomitant]
  2. QVAR [Concomitant]
  3. LANTUS [Concomitant]
  4. HYDRALAZINE HCL [Concomitant]
  5. CALCIUM WITH VITAMIN D (CALCIUM WITH VITAMIN D) [Concomitant]
  6. SOMATULINE DEPOT [Suspect]
     Indication: ACROMEGALY
     Dosage: 120 MG, ONCE EVERY 28 DAYS (120 MG, 1 IN 28 D), UNKNOWN
     Dates: start: 20110902
  7. SINGULAIR [Concomitant]
  8. HUMALOG [Concomitant]
  9. PROAIR HFA (SALBUTAMOL SULFATE) [Concomitant]
  10. MELATONIN (MELATONIN) [Concomitant]
  11. CALCITRIOL [Concomitant]
  12. ACETAMINOPHEN [Concomitant]
  13. NIFEDICAL XL (NIFEDIPINE) [Concomitant]
  14. LASIX [Concomitant]
  15. FLOVENT HSA (FLUTICASONE PROPIONATE) [Concomitant]
  16. FERROUS SULFATE TAB [Concomitant]
  17. DIOVAN [Concomitant]
  18. PLAVIX [Concomitant]
  19. MULTIVITAMIN [Concomitant]

REACTIONS (2)
  - BLOOD GLUCOSE DECREASED [None]
  - LOSS OF CONSCIOUSNESS [None]
